FAERS Safety Report 5572362-3 (Version None)
Quarter: 2007Q4

REPORT INFORMATION
  Report Type: 
  Country: None (occurrence: None)
  Receive Date: 20071219
  Receipt Date: 20070323
  Transmission Date: 20080405
  Serious: Yes (Hospitalization)
  Sender: FDA-Public Use
  Company Number: 64918

PATIENT
  Age: 20 Year
  Sex: Male

DRUGS (4)
  1. IBUPROFEN [Suspect]
     Indication: HEADACHE
     Dosage: 400MG/ AS NEEDED/ ORAL
     Route: 048
     Dates: start: 20070201, end: 20070210
  2. DICLOFENAC 50MG [Suspect]
     Indication: HEADACHE
     Dosage: 50MG/3/1DAYS/ORAL
     Route: 048
     Dates: start: 20070210, end: 20070212
  3. CHLORAMPHENICOL [Concomitant]
  4. CO-AMOXICLAV (AMOXICILLIN AND CLAVULANIC ACID) [Concomitant]

REACTIONS (1)
  - STEVENS-JOHNSON SYNDROME [None]
